FAERS Safety Report 6194238-3 (Version None)
Quarter: 2009Q2

REPORT INFORMATION
  Report Type: 
  Country: None (occurrence: None)
  Receive Date: 20090506
  Receipt Date: 20090424
  Transmission Date: 20091009
  Serious: Yes (Other)
  Sender: FDA-Public Use
  Company Number: THYM-1000750

PATIENT
  Age: 58 Year
  Sex: Female

DRUGS (6)
  1. THYMOGLOBULIN [Suspect]
     Indication: IMMUNOSUPPRESSION
     Dosage: 25 MG/KG, QD, INTRAVENOUS; 50 MG.KG, QD, INTRAVENOUS
     Route: 042
     Dates: start: 20080717, end: 20080726
  2. THYMOGLOBULIN [Suspect]
     Indication: IMMUNOSUPPRESSION
     Dosage: 25 MG/KG, QD, INTRAVENOUS; 50 MG.KG, QD, INTRAVENOUS
     Route: 042
     Dates: start: 20080717, end: 20080726
  3. PREDNISONE TAB [Concomitant]
  4. MYFORTIC [Concomitant]
  5. PROGRAF [Concomitant]
  6. GANCICLOVIR [Concomitant]

REACTIONS (3)
  - HAEMOLYTIC URAEMIC SYNDROME [None]
  - RENAL IMPAIRMENT [None]
  - TRANSPLANT REJECTION [None]
